FAERS Safety Report 11339295 (Version 1)
Quarter: 2015Q3

REPORT INFORMATION
  Report Type: Spontaneous
  Country: AR (occurrence: AR)
  Receive Date: 20150804
  Receipt Date: 20150804
  Transmission Date: 20151125
  Serious: Yes (Other)
  Sender: FDA-Public Use
  Company Number: AR-AMGEN-ARGSP2015077737

PATIENT
  Age: 62 Year
  Sex: Female

DRUGS (1)
  1. ENBREL [Suspect]
     Active Substance: ETANERCEPT
     Indication: RHEUMATOID ARTHRITIS
     Dosage: 50 MG, MONTHLY
     Route: 065
     Dates: start: 20080504, end: 201503

REACTIONS (2)
  - Pneumonia [Recovering/Resolving]
  - Pyrexia [Recovering/Resolving]

NARRATIVE: CASE EVENT DATE: 20150723
